FAERS Safety Report 12341414 (Version 2)
Quarter: 2016Q2

REPORT INFORMATION
  Report Type: Report from Study
  Country: FR (occurrence: FR)
  Receive Date: 20160506
  Receipt Date: 20160520
  Transmission Date: 20160815
  Serious: Yes (Hospitalization)
  Sender: FDA-Public Use
  Company Number: FR-PFIZER INC-2016229333

PATIENT
  Age: 67 Year
  Sex: Female

DRUGS (3)
  1. PALBOCICLIB [Suspect]
     Active Substance: PALBOCICLIB
     Indication: BREAST CANCER METASTATIC
     Dosage: 125 MG, DAILY
     Route: 048
     Dates: start: 20160406, end: 20160415
  2. FASLODEX [Interacting]
     Active Substance: FULVESTRANT
     Indication: HORMONE THERAPY
     Dosage: 500 MG, MONTHLY
     Route: 030
     Dates: start: 201603
  3. INNOHEP [Interacting]
     Active Substance: TINZAPARIN SODIUM
     Indication: PULMONARY EMBOLISM
     Dosage: 0.6 ML, UNK
     Dates: start: 20160317

REACTIONS (7)
  - Drug interaction [Recovered/Resolved]
  - Haemoglobin decreased [Unknown]
  - Neutrophil count decreased [Unknown]
  - Gastrointestinal disorder [Recovered/Resolved]
  - Haematemesis [Recovered/Resolved]
  - Rectal haemorrhage [Recovered/Resolved]
  - Infection [Recovered/Resolved]

NARRATIVE: CASE EVENT DATE: 20160414
